FAERS Safety Report 8983096 (Version 1)
Quarter: 2012Q4

REPORT INFORMATION
  Report Type: 
  Country: ES (occurrence: ES)
  Receive Date: 20121224
  Receipt Date: 20121224
  Transmission Date: 20130627
  Serious: Yes (Other)
  Sender: FDA-Public Use
  Company Number: ES-RANBAXY-2012R1-63480

PATIENT
  Age: 44 Year
  Sex: Female

DRUGS (6)
  1. FLUCONAZOLE [Suspect]
     Indication: VULVOVAGINAL CANDIDIASIS
     Dosage: 100 mg/day
     Route: 065
  2. CICLOSPORIN [Interacting]
     Indication: IMMUNOSUPPRESSANT DRUG THERAPY
     Dosage: 350 mg, bid
     Route: 048
  3. CICLOSPORIN [Interacting]
     Indication: IMMUNOSUPPRESSANT DRUG THERAPY
     Dosage: 150 mg, bid
     Route: 065
  4. CICLOSPORIN [Interacting]
     Indication: IMMUNOSUPPRESSANT DRUG THERAPY
     Dosage: 25 mg/day
     Route: 065
  5. LOPINAVIR/RITONAVIR [Interacting]
     Indication: ANTIRETROVIRAL THERAPY
     Dosage: 1 DF, bid
     Route: 065
  6. LOPINAVIR/RITONAVIR [Interacting]
     Indication: ANTIRETROVIRAL THERAPY
     Dosage: 1 DF, bid
     Route: 065

REACTIONS (3)
  - Drug interaction [Unknown]
  - Drug level increased [Recovered/Resolved]
  - Hepatotoxicity [Unknown]
